FAERS Safety Report 13565515 (Version 2)
Quarter: 2017Q2

REPORT INFORMATION
  Report Type: Spontaneous
  Country: US (occurrence: US)
  Receive Date: 20170519
  Receipt Date: 20170613
  Transmission Date: 20170830
  Serious: No
  Sender: FDA-Public Use
  Company Number: US-ACTELION-A-NJ2017-154174

PATIENT
  Age: 67 Year
  Sex: Male

DRUGS (8)
  1. CALCIUM [Concomitant]
     Active Substance: CALCIUM
  2. BOSWELLIA SERRATA OIL W/BROMELAINS/COLLAGEN/G [Concomitant]
  3. HALOG [Concomitant]
     Active Substance: HALCINONIDE
  4. PROTONIX [Concomitant]
     Active Substance: PANTOPRAZOLE SODIUM
  5. TURMERIC [Concomitant]
     Active Substance: HERBALS\TURMERIC
  6. SAW PALMETTO [Concomitant]
     Active Substance: HERBALS\SAW PALMETTO
  7. VALCHLOR [Suspect]
     Active Substance: MECHLORETHAMINE
     Indication: MYCOSIS FUNGOIDES
     Dosage: UNK
     Route: 061
     Dates: start: 201501
  8. CENTRUM [Concomitant]
     Active Substance: VITAMINS

REACTIONS (2)
  - Expired product administered [Unknown]
  - Pruritus [Unknown]
